FAERS Safety Report 15466443 (Version 1)
Quarter: 2018Q4

REPORT INFORMATION
  Report Type: Spontaneous
  Country: ZA (occurrence: ZA)
  Receive Date: 20181004
  Receipt Date: 20181004
  Transmission Date: 20190204
  Serious: Yes (Hospitalization)
  Sender: FDA-Public Use
  Company Number: ZA-009507513-1810ZAF001271

PATIENT
  Sex: Female

DRUGS (4)
  1. MARVELON [Suspect]
     Active Substance: DESOGESTREL\ETHINYL ESTRADIOL
     Route: 048
  2. ASPAVOR [Suspect]
     Active Substance: ATORVASTATIN
  3. METFORMINA SANDOZ [Suspect]
     Active Substance: METFORMIN HYDROCHLORIDE
  4. OXPOLA [Suspect]
     Active Substance: PRAMIPEXOLE DIHYDROCHLORIDE

REACTIONS (1)
  - Adverse event [Unknown]

NARRATIVE: CASE EVENT DATE: 201809
